FAERS Safety Report 23421309 (Version 1)
Quarter: 2024Q1

REPORT INFORMATION
  Report Type: Spontaneous
  Country: US (occurrence: None)
  Receive Date: 20240118
  Receipt Date: 20240118
  Transmission Date: 20240409
  Serious: Yes (Hospitalization)
  Sender: FDA-Public Use
  Company Number: None

PATIENT
  Sex: Female

DRUGS (2)
  1. BENLYSTA [Suspect]
     Active Substance: BELIMUMAB
     Indication: Systemic lupus erythematosus
     Route: 058
     Dates: start: 20230131
  2. HYDROXYCHLOR [Concomitant]

REACTIONS (3)
  - Blood phosphorus decreased [None]
  - Systemic lupus erythematosus [None]
  - Discomfort [None]
